FAERS Safety Report 23610171 (Version 1)
Quarter: 2024Q1

REPORT INFORMATION
  Report Type: Spontaneous
  Country: GB (occurrence: GB)
  Receive Date: 20240308
  Receipt Date: 20240308
  Transmission Date: 20240409
  Serious: Yes (Other)
  Sender: FDA-Public Use
  Company Number: GB-SUN PHARMACEUTICAL INDUSTRIES LTD-2024RR-434595

PATIENT
  Age: 74 Year
  Sex: Male
  Weight: 89 kg

DRUGS (1)
  1. ATORVASTATIN [Suspect]
     Active Substance: ATORVASTATIN
     Indication: Myocardial infarction
     Dosage: 20 MILLIGRAM
     Route: 048
     Dates: start: 20240201, end: 20240221

REACTIONS (1)
  - Mass excision [Recovered/Resolved]

NARRATIVE: CASE EVENT DATE: 20240214
